FAERS Safety Report 9699298 (Version 1)
Quarter: 2013Q4

REPORT INFORMATION
  Report Type: Spontaneous
  Country: US (occurrence: US)
  Receive Date: 20131120
  Receipt Date: 20131120
  Transmission Date: 20140711
  Serious: No
  Sender: FDA-Public Use
  Company Number: US-GILEAD-2008-0015484

PATIENT
  Sex: Female
  Weight: 113.4 kg

DRUGS (17)
  1. LETAIRIS [Suspect]
     Indication: PULMONARY ARTERIAL HYPERTENSION
     Route: 048
     Dates: start: 20080107, end: 20080208
  2. AMITRIPTYLINE [Concomitant]
     Dosage: AS DIRECTED
     Route: 061
  3. CLONIDINE [Concomitant]
     Dosage: AS DIRECTED
     Route: 061
  4. GABAPENTIN [Concomitant]
     Dosage: AS DIRECTED
     Route: 061
  5. KETAMINE [Concomitant]
     Dosage: AS DIRECTED
     Route: 061
  6. KETOPROFEN [Concomitant]
     Dosage: AS DIRECTED
     Route: 061
  7. LECITHIN [Concomitant]
     Dosage: AS DIRECTED
     Route: 061
  8. LIDOCAINE [Concomitant]
     Dosage: AS DIRECTED
     Route: 061
  9. POLOXAMER [Concomitant]
     Dosage: AS DIRECTED
     Route: 061
  10. HUMULIN N [Concomitant]
     Dosage: AS DIRECTED
     Route: 058
  11. LASIX [Concomitant]
     Route: 048
  12. LIPITOR [Concomitant]
     Route: 048
  13. ECOTRIN [Concomitant]
     Route: 048
  14. ALTACE [Concomitant]
     Route: 048
  15. PLAVIX [Concomitant]
     Route: 048
  16. LEVOXYL [Concomitant]
     Route: 048
  17. REMODULIN [Concomitant]
     Dosage: CONTINUOUS
     Route: 058

REACTIONS (4)
  - Dyspnoea [Unknown]
  - Palpitations [Unknown]
  - Sinus disorder [Unknown]
  - Headache [Unknown]
